FAERS Safety Report 22069686 (Version 1)
Quarter: 2023Q1

REPORT INFORMATION
  Report Type: Spontaneous
  Country: TW (occurrence: TW)
  Receive Date: 20230307
  Receipt Date: 20230307
  Transmission Date: 20230418
  Serious: Yes (Other)
  Sender: FDA-Public Use
  Company Number: TW-PFIZER INC-PV202300040341

PATIENT
  Age: 69 Year
  Sex: Female

DRUGS (2)
  1. LORLATINIB [Suspect]
     Active Substance: LORLATINIB
     Dosage: 25 MG, 2 TABS A DAY
     Route: 048
     Dates: start: 20221108
  2. LORLATINIB [Suspect]
     Active Substance: LORLATINIB
     Dosage: 25MG, 3 TABS A DAY
     Route: 048
     Dates: start: 20221213

REACTIONS (3)
  - Colon cancer [Unknown]
  - Post herpetic neuralgia [Unknown]
  - Off label use [Unknown]
